FAERS Safety Report 22032586 (Version 1)
Quarter: 2023Q1

REPORT INFORMATION
  Report Type: Spontaneous
  Country: US (occurrence: US)
  Receive Date: 20230224
  Receipt Date: 20230224
  Transmission Date: 20230417
  Serious: Yes (Hospitalization, Other)
  Sender: FDA-Public Use
  Company Number: US-Apnar-000132

PATIENT
  Age: 41 Year
  Sex: Female

DRUGS (3)
  1. FLUOXETINE HYDROCHLORIDE [Interacting]
     Active Substance: FLUOXETINE HYDROCHLORIDE
     Indication: Bipolar disorder
  2. CLOZAPINE [Interacting]
     Active Substance: CLOZAPINE
     Indication: Schizoaffective disorder
     Dosage: 100 MG ORAL IN THE MORNING AND 400 MG ORAL AT BEDTIME
  3. DILTIAZEM [Interacting]
     Active Substance: DILTIAZEM
     Indication: Hypertension

REACTIONS (6)
  - Electrocardiogram QT prolonged [Recovered/Resolved]
  - Ventricular extrasystoles [Recovered/Resolved]
  - Tachycardia [Unknown]
  - Drug interaction [Unknown]
  - Drug level increased [Recovered/Resolved]
  - Toxicity to various agents [Unknown]
